FAERS Safety Report 6632144-8 (Version None)
Quarter: 2010Q1

REPORT INFORMATION
  Report Type: 
  Country: None (occurrence: None)
  Receive Date: 20100312
  Receipt Date: 20100305
  Transmission Date: 20100710
  Serious: Yes (Other)
  Sender: FDA-Public Use
  Company Number: US-B.I. PHARMACEUTICALS,INC./RIDGEFIELD-2010-BP-02823PF

PATIENT
  Sex: Female

DRUGS (3)
  1. SPIRIVA [Suspect]
  2. VIAGRA [Suspect]
  3. LYRICA [Suspect]

REACTIONS (8)
  - BACK INJURY [None]
  - FATIGUE [None]
  - FIBROMYALGIA [None]
  - INSOMNIA [None]
  - LIMB OPERATION [None]
  - NECK INJURY [None]
  - NEOPLASM SKIN [None]
  - NERVE INJURY [None]
